FAERS Safety Report 5084444-3 (Version None)
Quarter: 2006Q3

REPORT INFORMATION
  Report Type: 
  Country: None (occurrence: None)
  Receive Date: 20060821
  Receipt Date: 20060815
  Transmission Date: 20061208
  Serious: Yes (Hospitalization)
  Sender: FDA-Public Use
  Company Number: GB-GLAXOSMITHKLINE-B0434666A

PATIENT
  Age: 84 Year
  Sex: Female

DRUGS (6)
  1. CEPHALEXIN [Suspect]
     Indication: URINARY TRACT INFECTION
     Route: 048
  2. TRIMETHOPRIN [Suspect]
     Dosage: 200MG UNKNOWN
     Route: 048
     Dates: start: 20060623
  3. BENDROFLUMETHIAZIDE [Concomitant]
     Indication: HYPERTENSION
     Route: 048
  4. OMEPRAZOLE [Concomitant]
     Route: 048
  5. ACETAMINOPHEN [Concomitant]
     Dosage: 1G AS REQUIRED
     Route: 048
  6. PROPRANOLOL [Concomitant]
     Route: 048

REACTIONS (3)
  - ERYTHEMA MULTIFORME [None]
  - RASH [None]
  - URINARY TRACT INFECTION [None]
